FAERS Safety Report 13383812 (Version 2)
Quarter: 2017Q1

REPORT INFORMATION
  Report Type: Spontaneous
  Country: IT (occurrence: IT)
  Receive Date: 20170329
  Receipt Date: 20170331
  Transmission Date: 20170429
  Serious: Yes (Other)
  Sender: FDA-Public Use
  Company Number: IT-SA-2017SA051420

PATIENT
  Age: 85 Year
  Sex: Male

DRUGS (2)
  1. ZANIPRIL [Suspect]
     Active Substance: ENALAPRIL MALEATE\LERCANIDIPINE HYDROCHLORIDE
     Route: 048
     Dates: start: 20170307
  2. IRBESARTAN. [Suspect]
     Active Substance: IRBESARTAN
     Route: 048

REACTIONS (3)
  - Syncope [Recovered/Resolved]
  - Drug abuse [Unknown]
  - Medication error [Unknown]

NARRATIVE: CASE EVENT DATE: 20170317
